FAERS Safety Report 7675203-3 (Version None)
Quarter: 2011Q3

REPORT INFORMATION
  Report Type: 
  Country: None (occurrence: None)
  Receive Date: 20110810
  Receipt Date: 20110810
  Transmission Date: 20111222
  Serious: Yes (Death)
  Sender: FDA-Public Use
  Company Number: None

PATIENT
  Age: 83 Year
  Sex: Female
  Weight: 63.502 kg

DRUGS (2)
  1. AMIODARONE HCL [Suspect]
     Indication: ARRHYTHMIA
     Dosage: 400 MG
     Route: 048
  2. GEODON [Concomitant]
     Indication: PSYCHOTIC DISORDER
     Dosage: 20 MG
     Route: 048

REACTIONS (2)
  - DRUG INTERACTION [None]
  - TORSADE DE POINTES [None]
